FAERS Safety Report 11822169 (Version 3)
Quarter: 2016Q1

REPORT INFORMATION
  Report Type: Spontaneous
  Country: US (occurrence: US)
  Receive Date: 20151210
  Receipt Date: 20160111
  Transmission Date: 20160525
  Serious: No
  Sender: FDA-Public Use
  Company Number: US-JNJFOC-20150209299

PATIENT
  Age: 69 Year
  Sex: Female
  Weight: 63 kg

DRUGS (16)
  1. FOLIC ACID. [Concomitant]
     Active Substance: FOLIC ACID
     Indication: SUPPLEMENTATION THERAPY
  2. CAYENNE [Concomitant]
     Indication: SUPPLEMENTATION THERAPY
  3. IMBRUVICA [Suspect]
     Active Substance: IBRUTINIB
     Indication: CHRONIC LYMPHOCYTIC LEUKAEMIA
     Route: 048
     Dates: start: 20150203
  4. VITAMIN D3 [Concomitant]
     Active Substance: CHOLECALCIFEROL
     Indication: SUPPLEMENTATION THERAPY
  5. PROBIOTIC [Concomitant]
     Active Substance: PROBIOTICS NOS
     Indication: SUPPLEMENTATION THERAPY
  6. STRONTIUM [Concomitant]
     Active Substance: STRONTIUM
     Indication: SUPPLEMENTATION THERAPY
  7. MAGNESIUM [Concomitant]
     Active Substance: MAGNESIUM
     Indication: SUPPLEMENTATION THERAPY
  8. VITAMIN C [Concomitant]
     Active Substance: ASCORBIC ACID
     Indication: SUPPLEMENTATION THERAPY
  9. QUERCETIN [Concomitant]
     Active Substance: QUERCETIN
     Indication: SUPPLEMENTATION THERAPY
  10. MULTIVITAMINS [Concomitant]
     Active Substance: VITAMINS
     Indication: SUPPLEMENTATION THERAPY
     Route: 048
  11. TURMERIC [Concomitant]
     Active Substance: TURMERIC
     Indication: SUPPLEMENTATION THERAPY
  12. VITAMINS [Concomitant]
     Active Substance: VITAMINS
     Indication: SUPPLEMENTATION THERAPY
  13. RED WINE EXTRACT [Concomitant]
     Active Substance: DIETARY SUPPLEMENT
     Indication: SUPPLEMENTATION THERAPY
  14. MENOPAUSE MOISTURE CREAM WITH RED CLOVER EXTRACT [Concomitant]
     Indication: SUPPLEMENTATION THERAPY
  15. ASTRAGALUS PROPINQUUS ROOT [Concomitant]
     Indication: SUPPLEMENTATION THERAPY
  16. GLUCOSAMINE CHONDROITIN MSM [Concomitant]
     Indication: SUPPLEMENTATION THERAPY

REACTIONS (32)
  - Hypoaesthesia [Recovered/Resolved]
  - Liver function test increased [Unknown]
  - Peripheral swelling [Recovered/Resolved]
  - Erythema [Recovered/Resolved]
  - Dehydration [Unknown]
  - Feeling cold [Recovered/Resolved]
  - Hair texture abnormal [Not Recovered/Not Resolved]
  - Increased tendency to bruise [Not Recovered/Not Resolved]
  - Blood creatinine increased [Not Recovered/Not Resolved]
  - Pain of skin [Not Recovered/Not Resolved]
  - Dry skin [Not Recovered/Not Resolved]
  - Non-cardiac chest pain [Recovered/Resolved]
  - Chills [Recovered/Resolved]
  - Diarrhoea [Recovering/Resolving]
  - Platelet count decreased [Not Recovered/Not Resolved]
  - Arthralgia [Not Recovered/Not Resolved]
  - Hiccups [Not Recovered/Not Resolved]
  - Muscle spasms [Not Recovered/Not Resolved]
  - Myalgia [Recovered/Resolved]
  - White blood cell count decreased [Not Recovered/Not Resolved]
  - Fatigue [Not Recovered/Not Resolved]
  - Ecchymosis [Not Recovered/Not Resolved]
  - Alopecia [Not Recovered/Not Resolved]
  - Genital herpes [Recovered/Resolved]
  - Impetigo [Recovered/Resolved with Sequelae]
  - Vomiting [Recovered/Resolved]
  - Haematochezia [Recovered/Resolved]
  - Hair colour changes [Not Recovered/Not Resolved]
  - Vaginal haemorrhage [Recovered/Resolved]
  - Cystitis [Recovered/Resolved]
  - Back pain [Recovered/Resolved]
  - Pruritus [Not Recovered/Not Resolved]

NARRATIVE: CASE EVENT DATE: 2015
